FAERS Safety Report 4692811-2 (Version None)
Quarter: 2005Q2

REPORT INFORMATION
  Report Type: 
  Country: None (occurrence: None)
  Receive Date: 20050617
  Receipt Date: 20050607
  Transmission Date: 20051028
  Serious: Yes (Other)
  Sender: FDA-Public Use
  Company Number: ES-ROCHE-406932

PATIENT
  Age: 41 Year
  Sex: Male
  Weight: 65 kg

DRUGS (5)
  1. PEGASYS [Suspect]
     Indication: DRUG USE FOR UNKNOWN INDICATION
     Dosage: PREFILLED SYRINGES
     Route: 058
     Dates: start: 20050115
  2. BECOZYME [Concomitant]
     Route: 048
     Dates: start: 19950615
  3. PLANTABEN [Concomitant]
     Route: 048
  4. OMEPRAZOLE [Concomitant]
     Route: 048
     Dates: start: 20030615
  5. ACETYLSALICYLIC ACID SRT [Concomitant]
     Route: 048
     Dates: start: 20041001

REACTIONS (3)
  - ASTHENIA [None]
  - HYPOCALCAEMIA [None]
  - PARAESTHESIA [None]
